FAERS Safety Report 4385085-3 (Version None)
Quarter: 2004Q2

REPORT INFORMATION
  Report Type: 
  Country: None (occurrence: None)
  Receive Date: 20040624
  Receipt Date: 20040624
  Transmission Date: 20050107
  Serious: Yes (Life-Threatening)
  Sender: FDA-Public Use
  Company Number: None

PATIENT
  Sex: Male
  Weight: 57 kg

DRUGS (2)
  1. ERIBITUX IMCLONE [Suspect]
     Indication: COLON CANCER METASTATIC
     Dosage: 10 MG IV
     Route: 042
     Dates: start: 20040503, end: 20040503
  2. IRINOTECAN [Concomitant]

REACTIONS (12)
  - AGITATION [None]
  - COMA [None]
  - DIARRHOEA [None]
  - DYSPNOEA [None]
  - FEELING HOT [None]
  - FLUSHING [None]
  - HEART RATE INCREASED [None]
  - HYPERSENSITIVITY [None]
  - HYPOKALAEMIA [None]
  - OXYGEN SATURATION DECREASED [None]
  - SKIN WARM [None]
  - SYNCOPE [None]
